FAERS Safety Report 8420946-7 (Version None)
Quarter: 2012Q2

REPORT INFORMATION
  Report Type: 
  Country: None (occurrence: None)
  Receive Date: 20120608
  Receipt Date: 20120605
  Transmission Date: 20120825
  Serious: Yes (Other)
  Sender: FDA-Public Use
  Company Number: US-PFIZER INC-2012135315

PATIENT
  Sex: Female
  Weight: 70.295 kg

DRUGS (3)
  1. ATENOLOL [Concomitant]
     Dosage: UNK
  2. LIPITOR [Suspect]
     Indication: BLOOD CHOLESTEROL INCREASED
     Dosage: 10 MG, 1X/DAY
     Route: 048
  3. ASPIRIN [Concomitant]
     Dosage: UNK

REACTIONS (3)
  - RETINAL DISORDER [None]
  - EYELID PTOSIS [None]
  - COLON CANCER [None]
